FAERS Safety Report 23203515 (Version 2)
Quarter: 2024Q1

REPORT INFORMATION
  Report Type: Spontaneous
  Country: US (occurrence: US)
  Receive Date: 20231120
  Receipt Date: 20240303
  Transmission Date: 20240410
  Serious: Yes (Hospitalization, Other)
  Sender: FDA-Public Use
  Company Number: US-ViiV Healthcare Limited-103698

PATIENT
  Age: 51 Year
  Sex: Male

DRUGS (2)
  1. RILPIVIRINE [Suspect]
     Active Substance: RILPIVIRINE
     Indication: Product used for unknown indication
     Dosage: UNK
     Route: 065
     Dates: start: 20221212, end: 20230717
  2. CABOTEGRAVIR [Suspect]
     Active Substance: CABOTEGRAVIR
     Indication: Product used for unknown indication
     Dosage: UNK
     Route: 065
     Dates: start: 20221212, end: 20230717

REACTIONS (7)
  - Myocardial infarction [Recovered/Resolved]
  - Epiglottitis [Recovered/Resolved]
  - Staphylococcal infection [Not Recovered/Not Resolved]
  - Feeding disorder [Recovered/Resolved]
  - Muscle atrophy [Not Recovered/Not Resolved]
  - Depression [Not Recovered/Not Resolved]
  - Psychotic disorder [Not Recovered/Not Resolved]

NARRATIVE: CASE EVENT DATE: 20230101
